FAERS Safety Report 9052246 (Version 1)
Quarter: 2013Q1

REPORT INFORMATION
  Report Type: Report from Study
  Country: FR (occurrence: FR)
  Receive Date: 20130206
  Receipt Date: 20130206
  Transmission Date: 20140127
  Serious: Yes (Other)
  Sender: FDA-Public Use
  Company Number: FR-009507513-2011SP036582

PATIENT
  Age: 57 Year
  Sex: Male
  Weight: 70 kg

DRUGS (9)
  1. BLINDED PEGINTERFERON ALFA-2B [Suspect]
     Indication: CHRONIC HEPATITIS C
     Dosage: 35 MICROGRAM, QW
     Dates: start: 20091006
  2. BLINDED PLACEBO [Suspect]
     Indication: CHRONIC HEPATITIS C
     Dosage: 35 MICROGRAM, QW
     Dates: start: 20091006
  3. BLINDED POST TRIAL THERAPY [Suspect]
     Indication: CHRONIC HEPATITIS C
     Dosage: 35 MICROGRAM, QW
     Dates: start: 20091006
  4. BLINDED POST TRIAL THERAPY [Suspect]
     Indication: CHRONIC HEPATITIS C
     Dosage: 35 MICROGRAM, QW
     Dates: start: 20091006
  5. BLINDED PRE TRIAL THERAPY [Suspect]
     Indication: CHRONIC HEPATITIS C
     Dosage: 35 MICROGRAM, QW
     Dates: start: 20091006
  6. BLINDED PRE TRIAL THERAPY [Suspect]
     Indication: CHRONIC HEPATITIS C
     Dosage: 35 MICROGRAM, QW
     Dates: start: 20091006
  7. BLINDED RIBAVIRIN [Suspect]
     Indication: CHRONIC HEPATITIS C
     Dosage: 35 MICROGRAM, QW
     Dates: start: 20091006
  8. BLINDED THERAPY [Suspect]
     Indication: CHRONIC HEPATITIS C
     Dosage: 1000 MG, QD
     Dates: start: 20091006
  9. KEPRA [Concomitant]
     Indication: EPILEPSY
     Dosage: 1.5 G, BID
     Dates: start: 20100223

REACTIONS (1)
  - Heart valve incompetence [Unknown]
